FAERS Safety Report 9073248 (Version 1)
Quarter: 2013Q1

REPORT INFORMATION
  Report Type: Report from Study
  Country: US (occurrence: US)
  Receive Date: 20130129
  Receipt Date: 20130129
  Transmission Date: 20140127
  Serious: No
  Sender: FDA-Public Use
  Company Number: US-ABBOTT-12P-163-0933802-00

PATIENT
  Age: 57 Year
  Sex: Female

DRUGS (11)
  1. HUMIRA 40 MG/0.8 ML PEN [Suspect]
     Indication: PSORIASIS
     Dosage: LOADING DOSE
     Dates: start: 20120419, end: 20120419
  2. HUMIRA 40 MG/0.8 ML PEN [Suspect]
     Dates: start: 20120427
  3. WELLBUTRIN [Concomitant]
     Indication: DEPRESSION
     Dosage: 450MG EVERY DAY
     Route: 048
  4. CYMBALTA [Concomitant]
     Indication: DEPRESSION
     Dosage: 90MG EVERY DAY
     Route: 048
  5. LOSARTAN [Concomitant]
     Indication: BLOOD PRESSURE
     Dosage: 100MG EVERY DAY
     Route: 048
  6. JANUMET [Concomitant]
     Indication: DIABETES MELLITUS
     Dosage: 50MG/500MG TWICE A DAY
     Route: 048
  7. CARDIZEM [Concomitant]
     Indication: PALPITATIONS
     Route: 048
  8. FOLIC ACID [Concomitant]
     Indication: PSORIASIS
  9. VITAMIN B12 [Concomitant]
     Indication: DEPRESSION
     Route: 048
  10. PROTOPIC [Concomitant]
     Indication: PRODUCT USED FOR UNKNOWN INDICATION
     Dosage: NIGHTLY
     Route: 061
  11. EFUDEX [Concomitant]
     Indication: PRODUCT USED FOR UNKNOWN INDICATION
     Route: 061

REACTIONS (4)
  - Injection site pain [Recovered/Resolved]
  - Injection site pain [Recovered/Resolved]
  - Injection site pain [Recovered/Resolved]
  - Injection site pain [Recovered/Resolved]
